FAERS Safety Report 9391074 (Version 1)
Quarter: 2013Q3

REPORT INFORMATION
  Report Type: Spontaneous
  Country: SV (occurrence: SV)
  Receive Date: 20130709
  Receipt Date: 20130709
  Transmission Date: 20140515
  Serious: Yes (Death)
  Sender: FDA-Public Use
  Company Number: SV-PFIZER INC-2013201662

PATIENT
  Sex: Female

DRUGS (1)
  1. ALTRULINE [Suspect]
     Dosage: UNK

REACTIONS (1)
  - Cardio-respiratory arrest [Fatal]
